FAERS Safety Report 6607406-0 (Version None)
Quarter: 2010Q1

REPORT INFORMATION
  Report Type: 
  Country: None (occurrence: None)
  Receive Date: 20100301
  Receipt Date: 20100203
  Transmission Date: 20100710
  Serious: No
  Sender: FDA-Public Use
  Company Number: FR-JNJFOC-20091102243

PATIENT
  Sex: Female
  Weight: 54 kg

DRUGS (8)
  1. RISPERDAL [Suspect]
     Indication: BIPOLAR I DISORDER
     Route: 065
  2. RISPERDAL [Suspect]
     Route: 065
  3. ACTONEL [Concomitant]
     Indication: OSTEOPOROSIS
     Route: 048
  4. DIACEREIN [Concomitant]
     Route: 065
  5. TERCIAN [Concomitant]
     Route: 065
  6. TERCIAN [Concomitant]
     Route: 065
  7. VITAMIN D [Concomitant]
     Route: 065
  8. CALCIUM WITH VITAMIN  D [Concomitant]
     Indication: OSTEOPOROSIS
     Route: 048

REACTIONS (2)
  - BLOOD CORTISOL INCREASED [None]
  - CUSHINGOID [None]
